FAERS Safety Report 5833568-9 (Version None)
Quarter: 2008Q3

REPORT INFORMATION
  Report Type: 
  Country: None (occurrence: None)
  Receive Date: 20080805
  Receipt Date: 20080724
  Transmission Date: 20090109
  Serious: Yes (Hospitalization)
  Sender: FDA-Public Use
  Company Number: US-ROCHE-551993

PATIENT
  Sex: Female
  Weight: 71.2 kg

DRUGS (16)
  1. BONIVA [Suspect]
     Indication: OSTEOPOROSIS
     Route: 048
     Dates: start: 20080118, end: 20080506
  2. UNSPECIFIED MEDICATION [Suspect]
     Dosage: REPORTED AS CORTICOSTEROID INJECTION.
     Route: 065
     Dates: start: 20080401
  3. FLECAINIDE ACETATE [Concomitant]
  4. WARFARIN SODIUM [Concomitant]
     Dosage: 1/2 TABLET MONDAY AND WEDNESDAYS AND 1 TABLET THE REST OF THE WEEK.
     Dates: end: 20080714
  5. WARFARIN SODIUM [Concomitant]
     Dates: start: 20080714
  6. ATENOLOL [Concomitant]
     Dosage: 1 TABLET DAILY
  7. AVAPRO [Concomitant]
  8. SIMVASTIN [Concomitant]
     Dosage: AT BEDTIME
  9. SPIRONOLACTONE [Concomitant]
     Dosage: REPORTED AS 25 MG, ONE HALF TABLET DAILY.
  10. PNEUMONIA VACCINE [Concomitant]
  11. FLU VACCINATION [Concomitant]
  12. HYDROCHLOROTHIAZIDE [Concomitant]
     Dosage: 1/2 TABLET DAILY
  13. LISINOPRIL [Concomitant]
  14. MULTIVITAMIN NOS [Concomitant]
  15. UNSPECIFIED MEDICATION [Concomitant]
     Dosage: REPORTED AS FLAX SEED OIL
  16. CALCIUM/VITAMIN D [Concomitant]

REACTIONS (17)
  - BACK PAIN [None]
  - BLOOD PRESSURE INCREASED [None]
  - BLOOD SODIUM DECREASED [None]
  - BRONCHITIS [None]
  - COUGH [None]
  - DYSPNOEA [None]
  - GROIN PAIN [None]
  - HAEMORRHOIDAL HAEMORRHAGE [None]
  - HEADACHE [None]
  - JOINT SWELLING [None]
  - MUSCULOSKELETAL PAIN [None]
  - OSTEOARTHRITIS [None]
  - PAIN [None]
  - SINUS CONGESTION [None]
  - SMALL INTESTINAL OBSTRUCTION [None]
  - VIRAL UPPER RESPIRATORY TRACT INFECTION [None]
  - VISION BLURRED [None]
